FAERS Safety Report 17107755 (Version 1)
Quarter: 2019Q4

REPORT INFORMATION
  Report Type: Spontaneous
  Country: US (occurrence: US)
  Receive Date: 20191203
  Receipt Date: 20191203
  Transmission Date: 20200122
  Serious: Yes (Hospitalization, Other)
  Sender: FDA-Public Use
  Company Number: US-PFIZER INC-2019513876

PATIENT
  Age: 70 Year
  Sex: Male

DRUGS (20)
  1. CELECOXIB. [Suspect]
     Active Substance: CELECOXIB
     Indication: CARDIAC DISORDER
  2. CELECOXIB. [Suspect]
     Active Substance: CELECOXIB
     Indication: ANGIOPATHY
  3. ZOLPIDEM TARTRATE. [Concomitant]
     Active Substance: ZOLPIDEM TARTRATE
     Indication: SLEEP DISORDER
     Dosage: 12.5 MG, 1X/DAY (12.5MG, TABLET, BY MOUTH, AT BEDTIME)
     Route: 048
  4. MELATONIN [Concomitant]
     Active Substance: MELATONIN
     Indication: SLEEP DISORDER
     Dosage: 3 MG, UNK
  5. CARVEDILOL. [Concomitant]
     Active Substance: CARVEDILOL
     Indication: BLOOD PRESSURE ABNORMAL
     Dosage: 3.125 MG, 2X/DAY [[HALF OF A 6.25MG, TABLET, BY MOUTH, TWICE A DAY]
     Route: 048
  6. TRAZODONE HYDROCHLORIDE. [Concomitant]
     Active Substance: TRAZODONE HYDROCHLORIDE
     Indication: DEPRESSION
     Dosage: 200 MG, 1X/DAY (TWO 100MG, TABLETS, BY MOUTH, AT BEDTIME)
     Route: 048
  7. VENLAFAXINE [Concomitant]
     Active Substance: VENLAFAXINE HYDROCHLORIDE
     Indication: DEPRESSION
     Dosage: 75 MG, UNK [ONE 75MG, CAPSULE, BY MOUTH, AFTER EACH MEAL]
     Route: 048
  8. CARVEDILOL. [Concomitant]
     Active Substance: CARVEDILOL
     Indication: CARDIAC DISORDER
  9. ANTI OXIDANT [Concomitant]
     Indication: SUPPLEMENTATION THERAPY
     Dosage: UNK
  10. VITAMIN D3 [Concomitant]
     Active Substance: CHOLECALCIFEROL
     Dosage: 25 MG, 1X/DAY
  11. ALEVE [Concomitant]
     Active Substance: NAPROXEN SODIUM
     Indication: BACK PAIN
     Dosage: 220 MG, UNK
  12. BABY ASPIRIN [Concomitant]
     Active Substance: ASPIRIN
     Dosage: 81 MG, 1X/DAY
     Route: 048
  13. COQ10 [Concomitant]
     Active Substance: UBIDECARENONE
     Indication: CARDIAC DISORDER
     Dosage: 200 MG, UNK
  14. CELECOXIB. [Suspect]
     Active Substance: CELECOXIB
     Indication: PAIN
     Dosage: 100 MG, TWICE A DAY
     Route: 048
     Dates: start: 201911
  15. CLOPIDOGREL [Concomitant]
     Active Substance: CLOPIDOGREL BISULFATE
     Dosage: 75 MG, 1X/DAY [75MG, TABLET, BY MOUTH, ONCE A DAY]
     Route: 048
  16. ISOSORBIDE. [Concomitant]
     Active Substance: ISOSORBIDE
     Indication: CHEST PAIN
     Dosage: 30 MG, DAILY (ONE 30MG TABLET, BY MOUTH, DAILY)
     Route: 048
  17. BRILINTA [Concomitant]
     Active Substance: TICAGRELOR
     Indication: CARDIAC DISORDER
     Dosage: 90 MG, 2X/DAY
     Route: 048
  18. DONEPEZIL HCL [Concomitant]
     Active Substance: DONEPEZIL HYDROCHLORIDE
     Indication: AMNESIA
     Dosage: 10 MG, 1X/DAY
     Route: 048
  19. OMEPRAZOLE. [Concomitant]
     Active Substance: OMEPRAZOLE
     Indication: GASTROINTESTINAL DISORDER
     Dosage: 20 MG, 2X/DAY [ONE 20MG EG CAPSULE, BY MOUTH, TWICE A DAY]
     Route: 048
  20. ALEVE [Concomitant]
     Active Substance: NAPROXEN SODIUM
     Indication: MYALGIA

REACTIONS (11)
  - Constipation [Not Recovered/Not Resolved]
  - Arterial occlusive disease [Unknown]
  - Tremor [Unknown]
  - Asthenia [Unknown]
  - Abdominal discomfort [Unknown]
  - Swelling [Unknown]
  - Renal pain [Not Recovered/Not Resolved]
  - Weight decreased [Unknown]
  - Hypermetropia [Unknown]
  - Cerebrovascular accident [Unknown]
  - Insomnia [Unknown]

NARRATIVE: CASE EVENT DATE: 201911
